FAERS Safety Report 19771634 (Version 2)
Quarter: 2022Q2

REPORT INFORMATION
  Report Type: Spontaneous
  Country: US (occurrence: US)
  Receive Date: 20210901
  Receipt Date: 20220429
  Transmission Date: 20220720
  Serious: No
  Sender: FDA-Public Use
  Company Number: US-PFIZER INC-2021391257

PATIENT
  Age: 46 Year
  Sex: Female

DRUGS (1)
  1. LYRICA [Suspect]
     Active Substance: PREGABALIN
     Dosage: 300 MG, 1X/DAY(TAKE 1 CAPSULE (300 MG TOTAL) BY MOUTH 1 (ONE) TIME EACH DAY)
     Route: 048

REACTIONS (1)
  - Sinusitis [Unknown]
